FAERS Safety Report 4930768-7 (Version None)
Quarter: 2006Q1

REPORT INFORMATION
  Report Type: 
  Country: None (occurrence: None)
  Receive Date: 20060302
  Receipt Date: 20060228
  Transmission Date: 20060701
  Serious: Yes (Death)
  Sender: FDA-Public Use
  Company Number: JP-SANOFI-SYNTHELABO-F01200600574

PATIENT
  Sex: Female
  Weight: 59 kg

DRUGS (10)
  1. OXALIPLATIN [Suspect]
     Indication: COLON CANCER
     Dosage: 165 MG/BODY = 102.5 MG/M2
     Route: 042
     Dates: start: 20050527, end: 20050527
  2. FLUOROURACIL [Suspect]
     Dosage: 650 MG/BODY = 403.7 MG/M2 IN BOLUS THEN 3950 MG/BODY = 2453.4 MG/M2 CONTINUOUS INFUSION
     Route: 042
     Dates: start: 20050527, end: 20050528
  3. CALCIUM LEVOFOLINATE [Suspect]
     Dosage: 325 MG/BODY = 201.9 MG/M2
     Route: 042
     Dates: start: 20050527, end: 20050528
  4. MAGNESOL [Concomitant]
     Route: 042
     Dates: start: 20051005, end: 20051124
  5. CALCICOL [Concomitant]
     Route: 042
     Dates: start: 20051005, end: 20051124
  6. FLUMARIN [Concomitant]
     Route: 042
     Dates: start: 20051207, end: 20051209
  7. CODEINE PHOSPHATE [Concomitant]
     Dosage: UNK
     Route: 048
     Dates: start: 20051208, end: 20051211
  8. MEROPEN [Concomitant]
     Route: 042
     Dates: start: 20051210, end: 20051211
  9. SOLU-MEDROL [Concomitant]
     Route: 042
     Dates: start: 20051211, end: 20051211
  10. MORPHINE [Concomitant]
     Dosage: UNK
     Route: 042
     Dates: start: 20051211, end: 20051211

REACTIONS (13)
  - CONDITION AGGRAVATED [None]
  - CONSTIPATION [None]
  - COUGH [None]
  - DYSPNOEA [None]
  - HAEMOGLOBIN DECREASED [None]
  - LEUKOPENIA [None]
  - METASTASES TO LIVER [None]
  - NEUROPATHY PERIPHERAL [None]
  - NEUTROPENIA [None]
  - ORAL INTAKE REDUCED [None]
  - PNEUMONIA [None]
  - RESPIRATORY FAILURE [None]
  - STOMATITIS [None]
